FAERS Safety Report 19083777 (Version 16)
Quarter: 2024Q2

REPORT INFORMATION
  Report Type: Report from Study
  Country: CA (occurrence: CA)
  Receive Date: 20210401
  Receipt Date: 20240625
  Transmission Date: 20240715
  Serious: Yes (Other)
  Sender: FDA-Public Use
  Company Number: CA-ASTELLAS-2021US011449

PATIENT
  Age: 43 Year
  Sex: Female

DRUGS (277)
  1. MIRABEGRON [Suspect]
     Active Substance: MIRABEGRON
     Indication: Migraine
     Route: 048
  2. MIRABEGRON [Suspect]
     Active Substance: MIRABEGRON
     Dosage: 1 DF, ONCE DAILY (1 EVERY 1 DAYS)
     Route: 065
  3. MIRABEGRON [Suspect]
     Active Substance: MIRABEGRON
     Dosage: 1 DF, ONCE DAILY (1 EVERY 1 DAYS)
     Route: 048
  4. MIRABEGRON [Suspect]
     Active Substance: MIRABEGRON
     Dosage: 1 DF, EVERY 2 DAYS
     Route: 048
  5. MIRABEGRON [Suspect]
     Active Substance: MIRABEGRON
     Dosage: 1.8 DF, (1 EVERY 1 DAYS)
     Route: 065
  6. MIRABEGRON [Suspect]
     Active Substance: MIRABEGRON
     Dosage: 1 DF, ONCE DAILY (1 EVERY 1 DAYS
     Route: 065
  7. AIMOVIG [Suspect]
     Active Substance: ERENUMAB-AOOE
     Indication: Migraine
     Route: 065
  8. ATOMOXETINE HYDROCHLORIDE [Suspect]
     Active Substance: ATOMOXETINE HYDROCHLORIDE
     Indication: Migraine
     Dosage: 1 DF, ONCE DAILY (1 EVERY 1 DAYS)
     Route: 005
  9. ATOMOXETINE HYDROCHLORIDE [Suspect]
     Active Substance: ATOMOXETINE HYDROCHLORIDE
     Route: 005
  10. ATOMOXETINE HYDROCHLORIDE [Suspect]
     Active Substance: ATOMOXETINE HYDROCHLORIDE
     Dosage: 1 DF, ONCE DAILY (1 EVERY 1 DAYS)
     Route: 005
  11. ATOMOXETINE [Suspect]
     Active Substance: ATOMOXETINE\ATOMOXETINE HYDROCHLORIDE
     Indication: Migraine
     Dosage: 1 DF, ONCE DAILY (1 EVERY 1 DAYS)
     Route: 065
  12. ATOMOXETINE [Suspect]
     Active Substance: ATOMOXETINE\ATOMOXETINE HYDROCHLORIDE
     Dosage: 1 DF, OTHER (1 EVERY 2 DAYS)
     Route: 065
  13. ATOMOXETINE [Suspect]
     Active Substance: ATOMOXETINE\ATOMOXETINE HYDROCHLORIDE
     Indication: Migraine
     Dosage: 1 DF, ONCE DAILY (1 EVERY 1 DAYS)
     Route: 065
  14. FLUTICASONE FUROATE [Suspect]
     Active Substance: FLUTICASONE FUROATE
     Indication: Product used for unknown indication
     Dosage: 1 DF, ONCE DAILY (1 EVERY 1 DAYS)
     Route: 065
  15. FLUTICASONE FUROATE [Suspect]
     Active Substance: FLUTICASONE FUROATE
     Dosage: UNK UNK, UNKNOWN FREQ.
     Route: 065
  16. FLUTICASONE FUROATE [Suspect]
     Active Substance: FLUTICASONE FUROATE
     Indication: Product used for unknown indication
     Dosage: 1 DF, ONCE DAILY (1 EVERY 1 DAYS)
     Route: 065
  17. BETAMETHASONE VALERATE [Suspect]
     Active Substance: BETAMETHASONE VALERATE
     Indication: Product used for unknown indication
     Dosage: 1 DF, ONCE DAILY (1 EVERY 1 DAY)
     Route: 065
  18. BETAMETHASONE VALERATE [Suspect]
     Active Substance: BETAMETHASONE VALERATE
     Dosage: UNK UNK, UNKNOWN FREQ.
     Route: 065
  19. BETAMETHASONE VALERATE [Suspect]
     Active Substance: BETAMETHASONE VALERATE
     Dosage: 1 DF, OTHER (1 EVERY 2 DAYS)
     Route: 065
  20. BETAMETHASONE VALERATE [Suspect]
     Active Substance: BETAMETHASONE VALERATE
     Dosage: 1 DF, ONCE DAILY (1 EVERY 1 DAY)
     Route: 065
  21. BETAMETHASONE VALERATE [Suspect]
     Active Substance: BETAMETHASONE VALERATE
     Route: 065
  22. BETAMETHASONE VALERATE [Suspect]
     Active Substance: BETAMETHASONE VALERATE
     Indication: Product used for unknown indication
     Dosage: 1 DF, ONCE DAILY (1 EVERY 1 DAYS, 361 DAYS)
     Route: 065
  23. BOTOX [Suspect]
     Active Substance: BOTULINUM TOXIN TYPE A\ONABOTULINUMTOXINA
     Indication: Migraine
     Dosage: UNK UNK, ONCE DAILY (SINGLE)
     Route: 065
  24. BUTRANS [Suspect]
     Active Substance: BUPRENORPHINE
     Indication: Product used for unknown indication
     Dosage: UNK UNK, UNKNOWN FREQ.
     Route: 065
  25. CETIRIZINE HYDROCHLORIDE\PSEUDOEPHEDRINE HYDROCHLORIDE [Suspect]
     Active Substance: CETIRIZINE HYDROCHLORIDE\PSEUDOEPHEDRINE HYDROCHLORIDE
     Indication: Product used for unknown indication
     Dosage: 1 DF, ONCE DAILY (1 EVERY 1 DAYS)
     Route: 065
  26. CYCLOBENZAPRINE HYDROCHLORIDE [Suspect]
     Active Substance: CYCLOBENZAPRINE HYDROCHLORIDE
     Indication: Product used for unknown indication
     Dosage: 1 DF, ONCE DAILY (1 EVERY 1 DAYS)
     Route: 065
  27. CYCLOBENZAPRINE HYDROCHLORIDE [Suspect]
     Active Substance: CYCLOBENZAPRINE HYDROCHLORIDE
     Dosage: 1 DF, OTHER (1 EVERY 2 DAYS)
     Route: 065
  28. CYCLOBENZAPRINE HYDROCHLORIDE [Suspect]
     Active Substance: CYCLOBENZAPRINE HYDROCHLORIDE
     Dosage: 1 DF, ONCE DAILY (1 EVERY 1 DAYS)
     Route: 065
  29. DOMPERIDONE\RABEPRAZOLE [Suspect]
     Active Substance: DOMPERIDONE\RABEPRAZOLE
     Indication: Product used for unknown indication
     Dosage: UNK UNK, ONCE DAILY (1 EVERY 1 DAYS)
     Route: 065
  30. DOMPERIDONE\RABEPRAZOLE [Suspect]
     Active Substance: DOMPERIDONE\RABEPRAZOLE
     Route: 065
  31. DOMPERIDONE\RABEPRAZOLE [Suspect]
     Active Substance: DOMPERIDONE\RABEPRAZOLE
     Indication: Product used for unknown indication
     Dosage: 3 DF, ONCE DAILY (3 EVERY 1 DAYS)
     Route: 065
  32. DOMPERIDONE\RABEPRAZOLE [Suspect]
     Active Substance: DOMPERIDONE\RABEPRAZOLE
     Dosage: 1 DF, THRICE DAILY (3 EVERY 1 DAYS)
     Route: 065
  33. DOMPERIDONE\RABEPRAZOLE [Suspect]
     Active Substance: DOMPERIDONE\RABEPRAZOLE
     Dosage: 1 DF, OTHER (1 EVERY 1 DAYS)
     Route: 065
  34. DOMPERIDONE\RABEPRAZOLE [Suspect]
     Active Substance: DOMPERIDONE\RABEPRAZOLE
     Dosage: 1 DF, EVERY 2 DAYS
     Route: 065
  35. FETZIMA [Suspect]
     Active Substance: LEVOMILNACIPRAN HYDROCHLORIDE
     Indication: Product used for unknown indication
     Dosage: 1 DF, ONCE DAILY (1 EVERY 1 DAYS)
     Route: 065
  36. FETZIMA [Suspect]
     Active Substance: LEVOMILNACIPRAN HYDROCHLORIDE
     Dosage: 1 DF, OTHER (1 EVERY 2 DAYS)
     Route: 065
  37. FETZIMA [Suspect]
     Active Substance: LEVOMILNACIPRAN HYDROCHLORIDE
     Dosage: 1 DF, ONCE DAILY (1 EVERY 1 DAYS)
     Route: 065
  38. FINACEA [Suspect]
     Active Substance: AZELAIC ACID
     Indication: Product used for unknown indication
     Dosage: UNK UNK, UNKNOWN FREQ.
     Route: 065
  39. FINACEA [Suspect]
     Active Substance: AZELAIC ACID
     Dosage: 1 DF, ONCE DAILY (1 EVERY 1 DAYS)
     Route: 048
  40. FINACEA [Suspect]
     Active Substance: AZELAIC ACID
     Dosage: 1 DF, OTHER (1 EVERY 2 DAYS)
     Route: 065
  41. FINACEA [Suspect]
     Active Substance: AZELAIC ACID
     Dosage: 1 DF, ONCE DAILY (1 EVERY 1 DAYS)
     Route: 065
  42. FINACEA [Suspect]
     Active Substance: AZELAIC ACID
     Dosage: 1 DF, ONCE DAILY (1 EVERY 1 DAYS)
     Route: 065
  43. FINACEA [Suspect]
     Active Substance: AZELAIC ACID
     Indication: Product used for unknown indication
     Dosage: 1 DF, ONCE DAILY (1 EVERY 1 DAYS)
     Route: 065
  44. HYDROMORPHONE [Suspect]
     Active Substance: HYDROMORPHONE
     Indication: Product used for unknown indication
     Dosage: 1 DF, OTHER (1 EVERY 2 DAYS)
     Route: 065
  45. HYDROMORPHONE [Suspect]
     Active Substance: HYDROMORPHONE
     Dosage: 1 DF, ONCE DAILY (1 EVERY 1 DAYS)
     Route: 065
  46. HYDROMORPHONE [Suspect]
     Active Substance: HYDROMORPHONE
     Route: 065
  47. HYDROMORPHONE [Suspect]
     Active Substance: HYDROMORPHONE
     Dosage: 2 DF, TWICE DAILY (2 EVERY 1 DAYS)
     Route: 065
  48. HYDROMORPHONE [Suspect]
     Active Substance: HYDROMORPHONE
     Route: 065
  49. HYDROMORPHONE [Suspect]
     Active Substance: HYDROMORPHONE
     Route: 065
  50. HYDROMORPHONE [Suspect]
     Active Substance: HYDROMORPHONE
     Dosage: 1 DF, OTHER (1 EVERY 2 DAYS)
     Route: 065
  51. HYDROMORPHONE [Suspect]
     Active Substance: HYDROMORPHONE
     Dosage: 1 DF, TWICE DAILY (2 EVERY 1 DAYS)
     Route: 065
  52. HYDROMORPHONE [Suspect]
     Active Substance: HYDROMORPHONE
     Dosage: UNK, UNKNOWN FREQ.
     Route: 065
  53. LAMICTAL [Suspect]
     Active Substance: LAMOTRIGINE
     Indication: Product used for unknown indication
     Dosage: 25 MG, OTHER (1 EVERY 2 DAYS)
     Route: 048
  54. LAMICTAL [Suspect]
     Active Substance: LAMOTRIGINE
     Dosage: 50 MG, OTHER (1 EVERY 2 DAYS)
     Route: 048
  55. LAMICTAL [Suspect]
     Active Substance: LAMOTRIGINE
     Route: 048
  56. LAMICTAL [Suspect]
     Active Substance: LAMOTRIGINE
     Dosage: 50 MG, ONCE DAILY (1 EVERY 1 DAYS)
     Route: 048
  57. LAMICTAL [Suspect]
     Active Substance: LAMOTRIGINE
     Dosage: 25 MG, ONCE DAILY (1 EVERY 1 DAYS)
     Route: 048
  58. LAMICTAL [Suspect]
     Active Substance: LAMOTRIGINE
     Dosage: 50 MG, TWICE DAILY (2 EVERY 1 DAYS)
     Route: 048
  59. LAMICTAL [Suspect]
     Active Substance: LAMOTRIGINE
     Dosage: 25 MG, TWICE DAILY (2 EVERY 1 DAYS)
     Route: 048
  60. LAMICTAL [Suspect]
     Active Substance: LAMOTRIGINE
     Dosage: 25 MG, OTHER (1 EVERY 2 DAYS)
     Route: 048
  61. LAMICTAL [Suspect]
     Active Substance: LAMOTRIGINE
     Dosage: 50 MG, TWICE DAILY (2 EVERY 1 DAYS)
     Route: 048
  62. LAMICTAL [Suspect]
     Active Substance: LAMOTRIGINE
  63. LAMICTAL [Suspect]
     Active Substance: LAMOTRIGINE
     Dosage: 50 MG, TWICE DAILY (2 EVERY 1 DAYS)
     Route: 048
  64. LAMICTAL [Suspect]
     Active Substance: LAMOTRIGINE
     Dosage: 50 MG, TWICE DAILY (2 EVERY 1 DAYS)
     Route: 048
  65. LAMICTAL [Suspect]
     Active Substance: LAMOTRIGINE
     Route: 048
  66. LAMICTAL [Suspect]
     Active Substance: LAMOTRIGINE
     Route: 048
  67. LAMICTAL [Suspect]
     Active Substance: LAMOTRIGINE
     Route: 048
  68. LAMICTAL [Suspect]
     Active Substance: LAMOTRIGINE
     Indication: Product used for unknown indication
     Route: 048
  69. LAMICTAL [Suspect]
     Active Substance: LAMOTRIGINE
     Dosage: 50 MG, TWICE DAILY (2 EVERY 1 DAYS)
     Route: 048
  70. LAMICTAL [Suspect]
     Active Substance: LAMOTRIGINE
     Dosage: 25 MG, TWICE DAILY (2 EVERY 1 DAYS)
     Route: 048
  71. NAPROXEN [Suspect]
     Active Substance: NAPROXEN
     Indication: Product used for unknown indication
     Dosage: 2 DF, TWICE DAILY (2 EVERY 1 DAYS)
     Route: 065
  72. NAPROXEN [Suspect]
     Active Substance: NAPROXEN
     Dosage: 1 DF, TWICE DAILY (2 EVERY 1 DAYS)
     Route: 065
  73. NAPROXEN [Suspect]
     Active Substance: NAPROXEN
     Route: 065
  74. NAPROXEN [Suspect]
     Active Substance: NAPROXEN
     Dosage: 2 DF, TWICE DAILY (2 EVERY 1 DAYS)
     Route: 065
  75. NAPROXEN [Suspect]
     Active Substance: NAPROXEN
     Dosage: 1 DF, EVERY 2 DAYS
     Route: 065
  76. NAPROXEN [Suspect]
     Active Substance: NAPROXEN
     Route: 065
  77. NAPROXEN [Suspect]
     Active Substance: NAPROXEN
     Dosage: 1 DF, ONCE DAILY (2 EVERY 1 DAYS)
     Route: 065
  78. PANTOPRAZOLE SODIUM [Suspect]
     Active Substance: PANTOPRAZOLE SODIUM
     Indication: Product used for unknown indication
     Dosage: 2 DF, ONCE DAILY (1 EVERY 1 DAYS)
     Route: 065
  79. PANTOPRAZOLE SODIUM [Suspect]
     Active Substance: PANTOPRAZOLE SODIUM
     Dosage: 1 DF, TWICE DAILY (2 EVERY 1 DAYS)
     Route: 065
  80. PANTOPRAZOLE SODIUM [Suspect]
     Active Substance: PANTOPRAZOLE SODIUM
     Dosage: 1 DF, ONCE DAILY (1 EVERY 1 DAYS)
     Route: 065
  81. RANITIDINE HYDROCHLORIDE [Suspect]
     Active Substance: RANITIDINE HYDROCHLORIDE
     Indication: Product used for unknown indication
     Dosage: UNK UNK, UNKNOWN FREQ.
     Route: 065
  82. RANITIDINE HYDROCHLORIDE [Suspect]
     Active Substance: RANITIDINE HYDROCHLORIDE
     Dosage: UNK UNK, UNKNOWN FREQ.
     Route: 065
  83. RANITIDINE HYDROCHLORIDE [Suspect]
     Active Substance: RANITIDINE HYDROCHLORIDE
     Dosage: UNK UNK, UNKNOWN FREQ.
     Route: 065
  84. TOPAMAX [Suspect]
     Active Substance: TOPIRAMATE
     Indication: Product used for unknown indication
     Dosage: 25 MG, ONCE DAILY (1 EVERY 1 DAYS)
     Route: 065
  85. TOPAMAX [Suspect]
     Active Substance: TOPIRAMATE
     Dosage: UNK UNK, UNKNOWN FREQ.
     Route: 065
  86. TOPAMAX [Suspect]
     Active Substance: TOPIRAMATE
     Dosage: 25 MG, EVERY 2 DAYS
     Route: 065
  87. TOPAMAX [Suspect]
     Active Substance: TOPIRAMATE
     Dosage: 25 MG, ONCE DAILY (1 EVERY 1 DAYS)
     Route: 065
  88. TOPICORT [Suspect]
     Active Substance: DESOXIMETASONE
     Indication: Product used for unknown indication
     Dosage: 2 DF, ONCE DAILY (2 EVERY 1 DAYS, 4 MONTHS)
     Route: 065
  89. TOPICORT [Suspect]
     Active Substance: DESOXIMETASONE
     Route: 065
  90. TOPICORT [Suspect]
     Active Substance: DESOXIMETASONE
     Route: 065
  91. TOPICORT [Suspect]
     Active Substance: DESOXIMETASONE
     Route: 065
  92. TOPICORT [Suspect]
     Active Substance: DESOXIMETASONE
     Dosage: 3 MG, ONCE DAILY (1 EVERY 1 DAYS)
     Route: 065
  93. TOPICORT [Suspect]
     Active Substance: DESOXIMETASONE
     Route: 065
  94. TOPICORT [Suspect]
     Active Substance: DESOXIMETASONE
     Dosage: 25 MG, OTHER (2 EVERY 1 DAYS)
     Route: 065
  95. TOPICORT [Suspect]
     Active Substance: DESOXIMETASONE
     Dosage: 25 MG, OTHER (2 EVERY 1 DAYS)
     Route: 065
  96. TOPICORT [Suspect]
     Active Substance: DESOXIMETASONE
     Dosage: 1 DF, OTHER (2 EVERY 1 DAYS)
     Route: 065
  97. TRAZODONE HYDROCHLORIDE [Suspect]
     Active Substance: TRAZODONE HYDROCHLORIDE
     Indication: Product used for unknown indication
     Dosage: 1 DF, ONCE DAILY (1 EVERY 1 DAYS)
     Route: 065
  98. TRAZODONE HYDROCHLORIDE [Suspect]
     Active Substance: TRAZODONE HYDROCHLORIDE
     Dosage: 1 DF, ONCE DAILY (1 EVERY 1 DAYS)
     Route: 065
  99. TRAZODONE HYDROCHLORIDE [Suspect]
     Active Substance: TRAZODONE HYDROCHLORIDE
     Dosage: 1 DF, OTHER (1 EVERY 2 DAYS)
     Route: 065
  100. TRAZODONE [Suspect]
     Active Substance: TRAZODONE HYDROCHLORIDE
     Indication: Product used for unknown indication
     Dosage: 1 DF, ONCE DAILY (1 EVERY 1 DAYS)
     Route: 065
  101. TRAZODONE [Suspect]
     Active Substance: TRAZODONE HYDROCHLORIDE
     Dosage: UNK UNK, UNKNOWN FREQ.
     Route: 065
  102. TRAZODONE [Suspect]
     Active Substance: TRAZODONE HYDROCHLORIDE
     Dosage: 1 DF, EVERY 2 DAYS
     Route: 065
  103. TRAZODONE [Suspect]
     Active Substance: TRAZODONE HYDROCHLORIDE
     Dosage: 1 DF, ONCE DAILY (1 EVERY 1 DAYS)
     Route: 065
  104. TRETINOIN [Suspect]
     Active Substance: TRETINOIN
     Indication: Product used for unknown indication
     Dosage: 1 DF, ONCE DAILY (1 EVERY 1 DAYS)
     Route: 065
  105. TRETINOIN [Suspect]
     Active Substance: TRETINOIN
     Dosage: UNK UNK, UNKNOWN FREQ.
     Route: 065
  106. TRETINOIN [Suspect]
     Active Substance: TRETINOIN
     Dosage: 1 DF, 1 EVERY 2 DAYS
     Route: 065
  107. TRETINOIN [Suspect]
     Active Substance: TRETINOIN
     Dosage: UNK UNK, UNKNOWN FREQ.
     Route: 065
  108. VITAMIN D3 [Suspect]
     Active Substance: CHOLECALCIFEROL
     Indication: Product used for unknown indication
     Dosage: UNK UNK, UNKNOWN FREQ.
     Route: 065
  109. VITAMIN D3 [Suspect]
     Active Substance: CHOLECALCIFEROL
     Dosage: UNK UNK, UNKNOWN FREQ.
     Route: 065
  110. VITAMIN C [Suspect]
     Active Substance: ASCORBIC ACID
     Indication: Product used for unknown indication
     Route: 065
  111. VITAMIN C [Suspect]
     Active Substance: ASCORBIC ACID
     Dosage: UNK UNK, UNKNOWN FREQ.
     Route: 065
  112. PHOSPHORUS [Suspect]
     Active Substance: PHOSPHORUS
     Indication: Product used for unknown indication
     Dosage: 1 DF, ONCE DAILY (1 EVERY 1 DAYS)
     Route: 065
  113. MAGNESIUM [Suspect]
     Active Substance: MAGNESIUM
     Indication: Product used for unknown indication
     Dosage: 1 DF, ONCE DAILY (1 EVERY 1 DAYS)
     Route: 065
  114. CALCIUM [Suspect]
     Active Substance: CALCIUM
     Indication: Product used for unknown indication
     Dosage: 1 DF, ONCE DAILY (1 EVERY 1 DAYS)
     Route: 065
  115. CORTISONE [Suspect]
     Active Substance: CORTISONE
     Indication: Product used for unknown indication
     Route: 065
  116. MILNACIPRAN HYDROCHLORIDE [Suspect]
     Active Substance: MILNACIPRAN HYDROCHLORIDE
     Indication: Product used for unknown indication
     Dosage: 1 DF, ONCE DAILY (1 EVERY 1 DAYS)
     Route: 065
  117. MILNACIPRAN HYDROCHLORIDE [Suspect]
     Active Substance: MILNACIPRAN HYDROCHLORIDE
     Dosage: 1 DF, OTHER (1 EVERY 2 DAYS)
     Route: 065
  118. AZELAIC ACID [Suspect]
     Active Substance: AZELAIC ACID
     Indication: Product used for unknown indication
     Dosage: UNK UNK, UNKNOWN FREQ.
     Route: 005
  119. AZELAIC ACID [Suspect]
     Active Substance: AZELAIC ACID
     Dosage: UNK UNK, TWICE DAILY (2 EVERY 1 DAY)
     Route: 065
  120. AZELAIC ACID [Suspect]
     Active Substance: AZELAIC ACID
     Dosage: 2 DF, ONCE DAILY (1 EVERY 1 DAYS)
     Route: 065
  121. CANDESARTAN CILEXETIL [Suspect]
     Active Substance: CANDESARTAN CILEXETIL
     Indication: Migraine
     Dosage: UNK UNK, UNKNOWN FREQ.
     Route: 048
  122. CETIRIZINE HYDROCHLORIDE [Suspect]
     Active Substance: CETIRIZINE HYDROCHLORIDE
     Indication: Product used for unknown indication
     Dosage: UNK UNK, UNKNOWN FREQ.
     Route: 065
  123. CETIRIZINE HYDROCHLORIDE [Suspect]
     Active Substance: CETIRIZINE HYDROCHLORIDE
     Dosage: UNK UNK, UNKNOWN FREQ.
     Route: 065
  124. CETIRIZINE HYDROCHLORIDE [Suspect]
     Active Substance: CETIRIZINE HYDROCHLORIDE
     Indication: Product used for unknown indication
     Dosage: 3 DF, ONCE DAILY (1 EVERY 1 DAYS)
     Route: 065
  125. CETIRIZINE HYDROCHLORIDE [Suspect]
     Active Substance: CETIRIZINE HYDROCHLORIDE
     Dosage: 1 DF, ONCE DAILY (1 EVERY 1 DAYS)
     Route: 065
  126. CETIRIZINE HYDROCHLORIDE [Suspect]
     Active Substance: CETIRIZINE HYDROCHLORIDE
     Dosage: 3 DF, EVERY 2 DAYS
     Route: 065
  127. CETIRIZINE HYDROCHLORIDE [Suspect]
     Active Substance: CETIRIZINE HYDROCHLORIDE
     Dosage: UNK UNK, UNKNOWN FREQ.
     Route: 048
  128. CETIRIZINE HYDROCHLORIDE [Suspect]
     Active Substance: CETIRIZINE HYDROCHLORIDE
     Dosage: UNK UNK, UNKNOWN FREQ.
     Route: 065
  129. CETIRIZINE HYDROCHLORIDE [Suspect]
     Active Substance: CETIRIZINE HYDROCHLORIDE
     Dosage: UNK, UNKNOWN FREQ.
     Route: 048
  130. CETIRIZINE HYDROCHLORIDE [Suspect]
     Active Substance: CETIRIZINE HYDROCHLORIDE
     Indication: Product used for unknown indication
     Dosage: UNK UNK, UNKNOWN FREQ.
     Route: 065
  131. DESOXIMETASONE [Suspect]
     Active Substance: DESOXIMETASONE
     Indication: Product used for unknown indication
     Dosage: 1 DF, TWICE DAILY (2 EVERY 1 DAYS)
     Route: 065
  132. DESOXIMETASONE [Suspect]
     Active Substance: DESOXIMETASONE
     Dosage: 25 MG, TWICE DAILY (2 EVERY 1 DAYS)
     Route: 065
  133. DESOXIMETASONE [Suspect]
     Active Substance: DESOXIMETASONE
     Dosage: 2 DF, OTHER (1 EVERY 1 DAY)
     Route: 065
  134. DESOXIMETASONE [Suspect]
     Active Substance: DESOXIMETASONE
     Dosage: 3 MG, ONCE DAILY (1 EVERY 1 DAYS)
     Route: 065
  135. DESOXIMETASONE [Suspect]
     Active Substance: DESOXIMETASONE
     Route: 065
  136. DESOXIMETASONE [Suspect]
     Active Substance: DESOXIMETASONE
     Dosage: 2 DF, ONCE DAILY (2 EVERY 1 DAYS)
     Route: 065
  137. DESOXIMETASONE [Suspect]
     Active Substance: DESOXIMETASONE
     Dosage: 25 MG, TWICE DAILY (2 EVERY 1 DAYS)
     Route: 065
  138. DESOXIMETASONE [Suspect]
     Active Substance: DESOXIMETASONE
     Dosage: 2 DF, TWICE DAILY (2 EVERY 1 DAYS)
     Route: 065
  139. DOMPERIDONE MALEATE [Suspect]
     Active Substance: DOMPERIDONE MALEATE
     Indication: Product used for unknown indication
     Dosage: 1 DF, ONCE DAILY (1 EVERY 1 DAYS)
     Route: 065
  140. DOMPERIDONE MALEATE [Suspect]
     Active Substance: DOMPERIDONE MALEATE
     Route: 065
  141. DOMPERIDONE MALEATE [Suspect]
     Active Substance: DOMPERIDONE MALEATE
     Dosage: 1 DF, ONCE DAILY (1 EVERY 1 DAYS)
     Route: 065
  142. DOMPERIDONE MALEATE [Suspect]
     Active Substance: DOMPERIDONE MALEATE
     Route: 065
  143. DOMPERIDONE MALEATE [Suspect]
     Active Substance: DOMPERIDONE MALEATE
     Route: 065
  144. HYDROMORPHONE HYDROCHLORIDE [Suspect]
     Active Substance: HYDROMORPHONE HYDROCHLORIDE
     Indication: Product used for unknown indication
     Route: 065
  145. HYDROMORPHONE HYDROCHLORIDE [Suspect]
     Active Substance: HYDROMORPHONE HYDROCHLORIDE
     Dosage: 1 DF, TWICE DAILY (2 EVERY 1 DAY)
     Route: 065
  146. HYDROMORPHONE HYDROCHLORIDE [Suspect]
     Active Substance: HYDROMORPHONE HYDROCHLORIDE
     Route: 065
  147. HYDROMORPHONE HYDROCHLORIDE [Suspect]
     Active Substance: HYDROMORPHONE HYDROCHLORIDE
     Dosage: 1 DF, OTHER (1 EVERY 2 DAYS)
     Route: 065
  148. HYDROMORPHONE HYDROCHLORIDE [Suspect]
     Active Substance: HYDROMORPHONE HYDROCHLORIDE
     Dosage: 1 DF, TWICE DAILY (2 EVERY 1 DAY)
     Route: 065
  149. HYDROMORPHONE HYDROCHLORIDE [Suspect]
     Active Substance: HYDROMORPHONE HYDROCHLORIDE
     Dosage: 1 DF, TWICE DAILY (2 EVERY 1 DAY)
     Route: 065
  150. HYDROMORPHONE HYDROCHLORIDE [Suspect]
     Active Substance: HYDROMORPHONE HYDROCHLORIDE
     Route: 065
  151. PAROXETINE [Suspect]
     Active Substance: PAROXETINE
     Indication: Product used for unknown indication
     Dosage: UNK UNK, UNKNOWN FREQ.
     Route: 065
  152. PSEUDOEPHEDRINE HYDROCHLORIDE [Suspect]
     Active Substance: PSEUDOEPHEDRINE HYDROCHLORIDE
     Indication: Product used for unknown indication
     Dosage: UNK UNK, UNKNOWN FREQ.
     Route: 065
  153. PSEUDOEPHEDRINE HYDROCHLORIDE [Suspect]
     Active Substance: PSEUDOEPHEDRINE HYDROCHLORIDE
     Dosage: UNK UNK, UNKNOWN FREQ.
     Route: 065
  154. VITAMIN D [Suspect]
     Active Substance: VITAMIN D NOS
     Indication: Product used for unknown indication
     Dosage: UNK UNK, UNKNOWN FREQ. (JAMIESON)
     Route: 065
  155. VITAMIN D3 [Suspect]
     Active Substance: CHOLECALCIFEROL
     Indication: Product used for unknown indication
     Dosage: UNK UNK, UNKNOWN FREQ.
     Route: 065
  156. VITAMIN D3 [Suspect]
     Active Substance: CHOLECALCIFEROL
     Dosage: UNK UNK, UNKNOWN FREQ.
     Route: 065
  157. CYCLOBENZAPRINE [Suspect]
     Active Substance: CYCLOBENZAPRINE
     Indication: Product used for unknown indication
     Dosage: 1 DF, OTHER (1 EVERY 2 DAYS)
     Route: 065
  158. CYCLOBENZAPRINE [Suspect]
     Active Substance: CYCLOBENZAPRINE
     Dosage: UNK UNK, UNKNOWN FREQ.
     Route: 065
  159. CYCLOBENZAPRINE [Suspect]
     Active Substance: CYCLOBENZAPRINE
     Dosage: 1 DF, ONCE DAILY (1 EVERY 1 DAYS)
     Route: 065
  160. CYCLOBENZAPRINE [Suspect]
     Active Substance: CYCLOBENZAPRINE
     Dosage: 1 DF, ONCE DAILY (1 EVERY 2 DAYS)
     Route: 065
  161. ERENUMAB-AOOE [Suspect]
     Active Substance: ERENUMAB-AOOE
     Indication: Migraine
     Dosage: UNK UNK, UNKNOWN FREQ.
     Route: 065
  162. ERENUMAB-AOOE [Suspect]
     Active Substance: ERENUMAB-AOOE
     Dosage: UNK UNK, UNKNOWN FREQ.
     Route: 065
  163. PANTOPRAZOLE [Suspect]
     Active Substance: PANTOPRAZOLE
     Indication: Product used for unknown indication
     Route: 065
  164. PANTOPRAZOLE [Suspect]
     Active Substance: PANTOPRAZOLE
     Route: 065
  165. PANTOPRAZOLE [Suspect]
     Active Substance: PANTOPRAZOLE
     Dosage: UNK UNK, UNKNOWN FREQ.
     Route: 065
  166. PANTOPRAZOLE [Suspect]
     Active Substance: PANTOPRAZOLE
     Route: 065
  167. PANTOPRAZOLE [Suspect]
     Active Substance: PANTOPRAZOLE
     Route: 065
  168. TOPIRAMATE [Suspect]
     Active Substance: TOPIRAMATE
     Indication: Migraine
     Dosage: 25 MG, ONCE DAILY (1 EVERY 1 DAYS)
     Route: 065
  169. TOPIRAMATE [Suspect]
     Active Substance: TOPIRAMATE
     Dosage: UNK UNK, UNKNOWN FREQ.
     Route: 065
  170. TOPIRAMATE [Suspect]
     Active Substance: TOPIRAMATE
     Dosage: 25 MG, ONCE DAILY  (1 EVERY 1 DAYS)
     Route: 065
  171. TOPIRAMATE [Suspect]
     Active Substance: TOPIRAMATE
     Dosage: 25 MG, ONCE DAILY (1 EVERY 1 DAYS)
     Route: 065
  172. TOPIRAMATE [Suspect]
     Active Substance: TOPIRAMATE
     Dosage: 25 MG, TWICE DAILY (1 EVERY 2 DAYS)
     Route: 065
  173. TOPIRAMATE [Suspect]
     Active Substance: TOPIRAMATE
     Dosage: 25 MG, TWICE DAILY (1 EVERY 2 DAYS)
     Route: 065
  174. TOPIRAMATE [Suspect]
     Active Substance: TOPIRAMATE
     Dosage: 3 MG, TWICE DAILY (1 EVERY 1 DAYS)
     Route: 065
  175. TOPIRAMATE [Suspect]
     Active Substance: TOPIRAMATE
     Dosage: 25 MG, ONCE DAILY (1 EVERY 1 DAYS)
     Route: 065
  176. TOPIRAMATE [Suspect]
     Active Substance: TOPIRAMATE
     Dosage: 25 MG, OTHER (2 EVERY 1 DAYS)
     Route: 065
  177. TOPIRAMATE [Suspect]
     Active Substance: TOPIRAMATE
     Route: 065
  178. STRATTERA [Suspect]
     Active Substance: ATOMOXETINE HYDROCHLORIDE
     Indication: Migraine
     Dosage: UNK UNK, ONCE DAILY (1 EVERY 1 DAYS)
     Route: 065
  179. STRATTERA [Suspect]
     Active Substance: ATOMOXETINE HYDROCHLORIDE
     Dosage: UNK UNK, UNKNOWN FREQ.
     Route: 065
  180. STRATTERA [Suspect]
     Active Substance: ATOMOXETINE HYDROCHLORIDE
     Route: 065
  181. CALCIUM [Suspect]
     Active Substance: CALCIUM
     Indication: Product used for unknown indication
     Dosage: UNK UNK, UNKNOWN FREQ.
     Route: 065
  182. MAGNESIUM [Suspect]
     Active Substance: MAGNESIUM
     Indication: Product used for unknown indication
     Dosage: UNK UNK, UNKNOWN FREQ.
     Route: 065
  183. PHOSPHORUS [Suspect]
     Active Substance: PHOSPHORUS
     Indication: Product used for unknown indication
     Dosage: UNK UNK, UNKNOWN FREQ.
     Route: 065
  184. BUPRENORPHINE [Suspect]
     Active Substance: BUPRENORPHINE\BUPRENORPHINE HYDROCHLORIDE
     Indication: Product used for unknown indication
     Dosage: UNK UNK, UNKNOWN FREQ.
     Route: 065
  185. DESOXIMETASONE [Suspect]
     Active Substance: DESOXIMETASONE
     Indication: Product used for unknown indication
     Dosage: 1 DF, TWICE DAILY (2 EVERY 1 DAYS)
     Route: 065
  186. FLUTICASONE FUROATE [Suspect]
     Active Substance: FLUTICASONE FUROATE
     Indication: Product used for unknown indication
     Dosage: 1 DF, ONCE DAILY (1 EVERY 1 DAYS)
     Route: 065
  187. LAMOTRIGINE [Suspect]
     Active Substance: LAMOTRIGINE
     Indication: Product used for unknown indication
     Dosage: 25 MG, TWICE DAILY (2 EVERY 1 DAYS)
     Route: 048
  188. LAMOTRIGINE [Suspect]
     Active Substance: LAMOTRIGINE
     Route: 048
  189. PANTOPRAZOLE SODIUM [Suspect]
     Active Substance: PANTOPRAZOLE SODIUM
     Indication: Product used for unknown indication
     Route: 065
  190. PANTOPRAZOLE SODIUM [Suspect]
     Active Substance: PANTOPRAZOLE SODIUM
     Dosage: 1 DF, TWICE DAILY (2 EVERY 1 DAYS)
     Route: 065
  191. CETIRIZINE HYDROCHLORIDE [Suspect]
     Active Substance: CETIRIZINE HYDROCHLORIDE
     Indication: Product used for unknown indication
     Dosage: UNK UNK, UNKNOWN FREQ.
     Route: 065
  192. CETIRIZINE HYDROCHLORIDE\PSEUDOEPHEDRINE HYDROCHLORIDE [Suspect]
     Active Substance: CETIRIZINE HYDROCHLORIDE\PSEUDOEPHEDRINE HYDROCHLORIDE
     Indication: Product used for unknown indication
     Dosage: UNK UNK, UNKNOWN FREQ.
     Route: 065
  193. CETIRIZINE HYDROCHLORIDE\PSEUDOEPHEDRINE HYDROCHLORIDE [Suspect]
     Active Substance: CETIRIZINE HYDROCHLORIDE\PSEUDOEPHEDRINE HYDROCHLORIDE
     Dosage: UNK, UNKNOWN FREQ.
     Route: 065
  194. ERENUMAB [Suspect]
     Active Substance: ERENUMAB
     Indication: Migraine
     Dosage: UNK UNK, UNKNOWN FREQ.
     Route: 065
  195. ERENUMAB [Suspect]
     Active Substance: ERENUMAB
     Dosage: UNK UNK, UNKNOWN FREQ.
     Route: 065
  196. ERENUMAB [Suspect]
     Active Substance: ERENUMAB
     Dosage: UNK UNK, UNKNOWN FREQ.
     Route: 065
  197. ACETAMINOPHEN [Suspect]
     Active Substance: ACETAMINOPHEN
     Indication: Product used for unknown indication
     Dosage: UNK UNK, UNKNOWN FREQ.
     Route: 065
  198. CALCIUM GLUCONATE [Suspect]
     Active Substance: CALCIUM GLUCONATE
     Indication: Product used for unknown indication
     Dosage: UNK UNK, UNKNOWN FREQ.
     Route: 065
  199. CALCIUM PANTOTHENATE [Suspect]
     Active Substance: CALCIUM PANTOTHENATE
     Indication: Product used for unknown indication
     Route: 065
  200. CANDESARTAN [Suspect]
     Active Substance: CANDESARTAN
     Indication: Migraine
     Dosage: UNK UNK, UNKNOWN FREQ.
     Route: 048
  201. CANDESARTAN [Suspect]
     Active Substance: CANDESARTAN
     Dosage: UNK UNK, UNKNOWN FREQ.
     Route: 048
  202. ERGOCALCIFEROL [Suspect]
     Active Substance: ERGOCALCIFEROL
     Indication: Product used for unknown indication
     Route: 065
  203. ERGOCALCIFEROL [Suspect]
     Active Substance: ERGOCALCIFEROL
     Dosage: UNK, UNKNOWN FREQ.
     Route: 065
  204. HYDROCORTISONE ACETATE [Suspect]
     Active Substance: HYDROCORTISONE ACETATE
     Indication: Product used for unknown indication
     Dosage: UNK UNK, TWICE DAILY (2 EVERY 1 DAYS)
     Route: 065
  205. HYDROCORTISONE ACETATE [Suspect]
     Active Substance: HYDROCORTISONE ACETATE
     Dosage: 25 MG, ONCE DAILY  (1 EVERY 1 DAYS)
     Route: 065
  206. HYDROCORTISONE ACETATE [Suspect]
     Active Substance: HYDROCORTISONE ACETATE
     Dosage: 25 MG, TWICE DAILY (2 EVERY 1 DAYS)
     Route: 065
  207. HYDROCORTISONE ACETATE [Suspect]
     Active Substance: HYDROCORTISONE ACETATE
     Dosage: 25 MG, ONCE DAILY  (1 EVERY 1 DAYS)
     Route: 065
  208. PAROXETINE HYDROCHLORIDE [Suspect]
     Active Substance: PAROXETINE HYDROCHLORIDE\PAROXETINE HYDROCHLORIDE ANHYDROUS
     Indication: Product used for unknown indication
     Dosage: UNK UNK, UNKNOWN FREQ.
     Route: 065
  209. RANITIDINE [Suspect]
     Active Substance: RANITIDINE
     Indication: Product used for unknown indication
     Dosage: UNK UNK, UNKNOWN FREQ.
     Route: 065
  210. RANITIDINE [Suspect]
     Active Substance: RANITIDINE
     Dosage: UNK UNK, UNKNOWN FREQ.
     Route: 065
  211. ATOMOXETINE HYDROCHLORIDE [Suspect]
     Active Substance: ATOMOXETINE HYDROCHLORIDE
     Indication: Migraine
     Dosage: 1 DF, ONCE DAILY (1 EVERY 1 DAYS)
     Route: 005
  212. ATOMOXETINE HYDROCHLORIDE [Suspect]
     Active Substance: ATOMOXETINE HYDROCHLORIDE
     Dosage: 1 DF, OTHER (1 EVERY 2 DAYS)
     Route: 005
  213. ATOMOXETINE HYDROCHLORIDE [Suspect]
     Active Substance: ATOMOXETINE HYDROCHLORIDE
     Dosage: 1 DF, ONCE DAILY (1 EVERY 1 DAYS)
     Route: 005
  214. CALCIUM PANTOTHENATE [Suspect]
     Active Substance: CALCIUM PANTOTHENATE
     Indication: Product used for unknown indication
     Route: 065
  215. DESOXIMETASONE [Suspect]
     Active Substance: DESOXIMETASONE
     Indication: Product used for unknown indication
     Dosage: 25 MG, TWICE DAILY (2 EVERY 1 DAYS)
     Route: 065
  216. DESOXIMETASONE [Suspect]
     Active Substance: DESOXIMETASONE
     Dosage: 25 MG, TWICE DAILY (2 EVERY 1 DAYS)
     Route: 065
  217. DOMPERIDONE [Suspect]
     Active Substance: DOMPERIDONE
     Indication: Product used for unknown indication
     Route: 065
  218. NAPROXEN [Suspect]
     Active Substance: NAPROXEN
     Indication: Product used for unknown indication
     Dosage: 1 DF, ONCE DAILY (1 EVERY 1 DAYS)
     Route: 065
  219. NAPROXEN [Suspect]
     Active Substance: NAPROXEN
     Dosage: 1 DF, ONCE DAILY (1 EVERY 1 DAYS)
     Route: 065
  220. NAPROXEN [Suspect]
     Active Substance: NAPROXEN
     Dosage: 1 DF, TWICE DAILY (2 EVERY 1 DAYS)
     Route: 065
  221. NAPROXEN [Suspect]
     Active Substance: NAPROXEN
     Dosage: 2 DF, TWICE DAILY (2 EVERY 1 DAYS)
     Route: 065
  222. NAPROXEN [Suspect]
     Active Substance: NAPROXEN
     Dosage: 2 DF, OTHER (1 EVERY 2 DAYS)
     Route: 065
  223. NAPROXEN [Suspect]
     Active Substance: NAPROXEN
     Dosage: 1 DF, TWICE DAILY (2 EVERY 1 DAYS)
     Route: 065
  224. NAPROXEN [Suspect]
     Active Substance: NAPROXEN
     Route: 065
  225. NAPROXEN [Suspect]
     Active Substance: NAPROXEN
     Dosage: 1 DF, OTHER (2 EVERY 1 DAYS)
     Route: 005
  226. PAROXETINE [Suspect]
     Active Substance: PAROXETINE
     Indication: Product used for unknown indication
     Dosage: UNK UNK, UNKNOWN FREQ.
     Route: 065
  227. CETIRIZINE HYDROCHLORIDE\PSEUDOEPHEDRINE HYDROCHLORIDE [Suspect]
     Active Substance: CETIRIZINE HYDROCHLORIDE\PSEUDOEPHEDRINE HYDROCHLORIDE
     Indication: Product used for unknown indication
     Dosage: 1 DF, ONCE DAILY 1 EVERY 1 DAYS
     Route: 065
  228. HYDROCORTISONE [Suspect]
     Active Substance: HYDROCORTISONE\HYDROCORTISONE ACETATE
     Indication: Product used for unknown indication
     Dosage: UNK UNK, UNKNOWN FREQ.
     Route: 065
  229. HYDROCORTISONE [Suspect]
     Active Substance: HYDROCORTISONE\HYDROCORTISONE ACETATE
     Dosage: UNK UNK, TWICE DAILY (2 EVERY 1 DAYS)
     Route: 065
  230. HYDROCORTISONE [Suspect]
     Active Substance: HYDROCORTISONE\HYDROCORTISONE ACETATE
     Dosage: 1 DF, ONCE DAILY (1 EVERY 1 DAYS)
     Route: 065
  231. PANTOPRAZOLE [Suspect]
     Active Substance: PANTOPRAZOLE
     Indication: Product used for unknown indication
     Dosage: 2 DF, ONCE DAILY (1 EVERY 1 DAYS)
     Route: 065
  232. PANTOPRAZOLE [Suspect]
     Active Substance: PANTOPRAZOLE
     Dosage: 1 DF, OTHER (1 EVERY 2 DAYS)
     Route: 065
  233. PANTOPRAZOLE [Suspect]
     Active Substance: PANTOPRAZOLE
     Dosage: 2 DF, TWICE DAILY (2 EVERY 1 DAYS)
     Route: 065
  234. PANTOPRAZOLE [Suspect]
     Active Substance: PANTOPRAZOLE
     Dosage: UNK UNK, UNKNOWN FREQ.
     Route: 065
  235. PANTOPRAZOLE [Suspect]
     Active Substance: PANTOPRAZOLE
     Route: 065
  236. PANTOPRAZOLE [Suspect]
     Active Substance: PANTOPRAZOLE
     Route: 048
  237. PANTOPRAZOLE [Suspect]
     Active Substance: PANTOPRAZOLE
     Dosage: 1 DF, OTHER (3 EVERY 1 DAYS)
     Route: 065
  238. PANTOPRAZOLE [Suspect]
     Active Substance: PANTOPRAZOLE
     Dosage: 1 DF, OTHER (3 EVERY 1 DAYS)
     Route: 065
  239. PANTOPRAZOLE [Suspect]
     Active Substance: PANTOPRAZOLE
     Route: 065
  240. PANTOPRAZOLE [Suspect]
     Active Substance: PANTOPRAZOLE
     Dosage: 1 DF, OTHER (2EVERY 1 DAYS)
     Route: 065
  241. PANTOPRAZOLE [Suspect]
     Active Substance: PANTOPRAZOLE
     Dosage: 1 DF, OTHER (2EVERY 1 DAYS)
     Route: 065
  242. ATOMOXETINE HYDROCHLORIDE [Suspect]
     Active Substance: ATOMOXETINE HYDROCHLORIDE
     Indication: Migraine
     Dosage: 1 DF, EVERY 2 DAYS
     Route: 065
  243. DOMPERIDONE\PANTOPRAZOLE SODIUM [Suspect]
     Active Substance: DOMPERIDONE\PANTOPRAZOLE SODIUM
     Indication: Product used for unknown indication
     Route: 065
  244. DOMPERIDONE\PANTOPRAZOLE SODIUM [Suspect]
     Active Substance: DOMPERIDONE\PANTOPRAZOLE SODIUM
     Dosage: 1 DF, OTHER (1 EVERY 2 DAYS)
     Route: 065
  245. DOMPERIDONE\PANTOPRAZOLE SODIUM [Suspect]
     Active Substance: DOMPERIDONE\PANTOPRAZOLE SODIUM
     Route: 065
  246. DOMPERIDONE\PANTOPRAZOLE SODIUM [Suspect]
     Active Substance: DOMPERIDONE\PANTOPRAZOLE SODIUM
     Dosage: 1 DF, OTHER (1 EVERY 2 DAYS)
     Route: 065
  247. DOMPERIDONE\PANTOPRAZOLE SODIUM [Suspect]
     Active Substance: DOMPERIDONE\PANTOPRAZOLE SODIUM
     Dosage: 1 DF, OTHER (4 EVERY 2 DAYS)
     Route: 065
  248. DOMPERIDONE\PANTOPRAZOLE SODIUM [Suspect]
     Active Substance: DOMPERIDONE\PANTOPRAZOLE SODIUM
     Route: 065
  249. DOMPERIDONE\PANTOPRAZOLE SODIUM [Suspect]
     Active Substance: DOMPERIDONE\PANTOPRAZOLE SODIUM
     Dosage: 1 DF, OTHER (4 EVERY 1 DAYS)
     Route: 065
  250. DESOXIMETASONE [Suspect]
     Active Substance: DESOXIMETASONE
     Indication: Product used for unknown indication
     Dosage: 25 MG, OTHER (2 EVERY 1 DAYS)
     Route: 065
  251. DESOXIMETASONE [Suspect]
     Active Substance: DESOXIMETASONE
     Dosage: 25 MG, OTHER (2 EVERY 1 DAYS)
     Route: 065
  252. BUTRANS [Suspect]
     Active Substance: BUPRENORPHINE
     Indication: Product used for unknown indication
     Dosage: UNK UNK, UNKNOWN FREQ.
     Route: 065
  253. VITAMIN D3 [Suspect]
     Active Substance: CHOLECALCIFEROL
     Indication: Product used for unknown indication
     Dosage: UNK UNK, UNKNOWN FREQ.
     Route: 065
  254. PYRIDOXINE HYDROCHLORIDE\RIBOFLAVIN [Suspect]
     Active Substance: PYRIDOXINE HYDROCHLORIDE\RIBOFLAVIN
     Indication: Product used for unknown indication
     Route: 065
  255. NICOTINAMIDE [Suspect]
     Active Substance: NIACINAMIDE
     Indication: Product used for unknown indication
     Route: 065
  256. AIMOVIG [Suspect]
     Active Substance: ERENUMAB-AOOE
     Indication: Migraine
     Dosage: UNK UNK, UNKNOWN FREQ.
     Route: 065
  257. AIMOVIG [Suspect]
     Active Substance: ERENUMAB-AOOE
     Route: 065
  258. TRICHOLINE CITRATE [Suspect]
     Active Substance: TRICHOLINE CITRATE
     Indication: Product used for unknown indication
     Dosage: UNK UNK, UNKNOWN FREQ.
     Route: 065
  259. CYANOCOBALAMIN [Suspect]
     Active Substance: CYANOCOBALAMIN
     Indication: Product used for unknown indication
     Dosage: UNK UNK, UNKNOWN FREQ.
     Route: 065
  260. CYANOCOBALAMIN [Suspect]
     Active Substance: CYANOCOBALAMIN
     Route: 048
  261. DEXPANTHENOL [Suspect]
     Active Substance: DEXPANTHENOL
     Indication: Product used for unknown indication
     Route: 065
  262. DOMPERIDONE [Suspect]
     Active Substance: DOMPERIDONE
     Indication: Product used for unknown indication
     Route: 065
  263. DOMPERIDONE [Suspect]
     Active Substance: DOMPERIDONE
     Route: 065
  264. DOMPERIDONE [Suspect]
     Active Substance: DOMPERIDONE
     Route: 065
  265. DOMPERIDONE [Suspect]
     Active Substance: DOMPERIDONE
     Route: 065
  266. DOMPERIDONE [Suspect]
     Active Substance: DOMPERIDONE
     Dosage: 1 DF, OTHER (1 EVERY 2 DAYS)
     Route: 065
  267. DOMPERIDONE [Suspect]
     Active Substance: DOMPERIDONE
     Dosage: 1 DF, ONCE DAILY (1 EVERY 1 DAYS)
     Route: 065
  268. DOMPERIDONE [Suspect]
     Active Substance: DOMPERIDONE
     Dosage: UNK, CYCLIC
     Route: 065
  269. FOLIC ACID [Suspect]
     Active Substance: FOLIC ACID
     Indication: Product used for unknown indication
     Route: 065
  270. PREDNICARBATE [Suspect]
     Active Substance: PREDNICARBATE
     Indication: Product used for unknown indication
     Dosage: UNK UNK, UNKNOWN FREQ.
     Route: 065
  271. RIBOFLAVIN [Suspect]
     Active Substance: RIBOFLAVIN
     Indication: Product used for unknown indication
     Dosage: UNK UNK, UNKNOWN FREQ.
     Route: 065
  272. CETIRIZINE [Suspect]
     Active Substance: CETIRIZINE HYDROCHLORIDE
     Indication: Product used for unknown indication
     Dosage: UNK UNK, UNKNOWN FREQ.
     Route: 048
  273. CETIRIZINE [Suspect]
     Active Substance: CETIRIZINE HYDROCHLORIDE
     Indication: Product used for unknown indication
     Dosage: 3 DF, OTHER (1 EVERY 2 DAYS)
     Route: 065
  274. CETIRIZINE [Suspect]
     Active Substance: CETIRIZINE HYDROCHLORIDE
     Route: 065
  275. CETIRIZINE [Suspect]
     Active Substance: CETIRIZINE HYDROCHLORIDE
     Dosage: UNK, UNKNOWN FREQ.
     Route: 048
  276. CETIRIZINE [Suspect]
     Active Substance: CETIRIZINE HYDROCHLORIDE
     Dosage: UNK, UNKNOWN FREQ.
     Route: 065
  277. CETIRIZINE [Suspect]
     Active Substance: CETIRIZINE HYDROCHLORIDE
     Route: 065

REACTIONS (14)
  - Epilepsy [Unknown]
  - Abdominal pain upper [Unknown]
  - Blepharospasm [Unknown]
  - Drug intolerance [Unknown]
  - Gastrooesophageal reflux disease [Unknown]
  - Hypoaesthesia [Unknown]
  - Memory impairment [Unknown]
  - Migraine [Unknown]
  - Pain [Unknown]
  - Paraesthesia [Unknown]
  - Vomiting [Unknown]
  - Taste disorder [Unknown]
  - Drug ineffective for unapproved indication [Unknown]
  - Off label use [Unknown]
